FAERS Safety Report 5986863-7 (Version None)
Quarter: 2008Q4

REPORT INFORMATION
  Report Type: 
  Country: None (occurrence: None)
  Receive Date: 20081209
  Receipt Date: 20081114
  Transmission Date: 20090506
  Serious: No
  Sender: FDA-Public Use
  Company Number: US-BAYER-200814421BCC

PATIENT
  Age: 84 Year
  Sex: Female
  Weight: 73 kg

DRUGS (2)
  1. ALEVE (CAPLET) [Suspect]
     Indication: ARTHRITIS
     Dosage: AS USED: 220-440 MG  UNIT DOSE: 220 MG
     Dates: start: 20080301, end: 20081113
  2. ANTI-DIABETIC THERAPY [Concomitant]
     Indication: DIABETES MELLITUS

REACTIONS (1)
  - ARTHRITIS [None]
